FAERS Safety Report 19582975 (Version 2)
Quarter: 2021Q3

REPORT INFORMATION
  Report Type: Report from Study
  Country: AR (occurrence: AR)
  Receive Date: 20210720
  Receipt Date: 20210813
  Transmission Date: 20211014
  Serious: Yes (Death, Other)
  Sender: FDA-Public Use
  Company Number: AR-BRISTOL-MYERS SQUIBB COMPANY-BMS-2021-070394

PATIENT
  Age: 45 Year
  Sex: Male
  Weight: 94 kg

DRUGS (20)
  1. CLONAZEPAM. [Concomitant]
     Active Substance: CLONAZEPAM
     Indication: ANXIETY
     Dosage: 1 MILLIGRAM, Q12H
     Route: 048
     Dates: start: 20210624, end: 20210625
  2. DIAZEPAM. [Concomitant]
     Active Substance: DIAZEPAM
     Indication: SEDATION
     Dosage: 10AMP IN 500ML SOLUTION CONTINUOS INFUSION
     Route: 042
     Dates: start: 20210624, end: 20210714
  3. PROPOFOL. [Concomitant]
     Active Substance: PROPOFOL
     Indication: SEDATION
     Dosage: 5AMPOULE IN 250ML SOLUTION
     Route: 042
     Dates: start: 20210624, end: 20210627
  4. DIPHENHYDRAMINE. [Concomitant]
     Active Substance: DIPHENHYDRAMINE
     Indication: COUGH
     Dosage: 3 MILLILITER, Q8H
     Route: 048
     Dates: start: 20210624, end: 20210625
  5. ABATACEPT [Suspect]
     Active Substance: ABATACEPT
     Indication: COVID-19
     Dosage: 940 MILLIGRAM
     Route: 065
     Dates: start: 20210625, end: 20210625
  6. CLARITHROMYCIN. [Concomitant]
     Active Substance: CLARITHROMYCIN
     Indication: COVID-19 PNEUMONIA
     Dosage: 500 MILLIGRAM, Q12H
     Route: 042
     Dates: start: 20210624, end: 20210630
  7. PANCURONIUM [Concomitant]
     Active Substance: PANCURONIUM
     Indication: NEUROMUSCULAR BLOCKADE
     Dosage: 1AMPOULE, Q6H
     Route: 042
     Dates: start: 20210626, end: 20210705
  8. REMIFENTANIL [Concomitant]
     Active Substance: REMIFENTANIL
     Indication: SEDATION
     Dosage: 2 AMPOULE IN 100ML SOLUTION, CONTINUOUS INFUSION
     Route: 042
     Dates: start: 20210624, end: 20210714
  9. REMDESIVIR. [Suspect]
     Active Substance: REMDESIVIR
     Dosage: 100 MILLIGRAM, QD, MAINTENANCE DOSE
     Route: 042
     Dates: start: 20210626, end: 20210704
  10. DEXMEDETOMIDINE. [Concomitant]
     Active Substance: DEXMEDETOMIDINE
     Indication: SEDATION
     Dosage: 2AMPOULES, QD, CONTINOUS INFUSION
     Route: 042
     Dates: start: 20210629, end: 20210629
  11. AMPICILLIN/SULBACTAM [Concomitant]
     Active Substance: AMPICILLIN SODIUM\SULBACTAM SODIUM
     Indication: COVID-19 PNEUMONIA
     Dosage: 1.5 GRAM, Q8H
     Route: 042
     Dates: start: 20210624, end: 20210707
  12. ATRACURIO [ATRACURIUM] [Concomitant]
     Indication: NEUROMUSCULAR BLOCKADE
     Dosage: 1 AMPOULE, Q4H
     Route: 042
     Dates: start: 20210624, end: 20210625
  13. HEPARIN [Concomitant]
     Active Substance: HEPARIN SODIUM
     Indication: DEEP VEIN THROMBOSIS
     Dosage: 5000 INTERNATIONAL UNIT, Q8H
     Route: 058
     Dates: start: 20210624, end: 20210714
  14. DEXAMETHASONE. [Concomitant]
     Active Substance: DEXAMETHASONE
     Indication: COVID-19 PNEUMONIA
     Dosage: 8 MILLIGRAM, QD
     Route: 042
     Dates: start: 20210624, end: 20210707
  15. MORPHINE [Concomitant]
     Active Substance: MORPHINE
     Indication: DYSPNOEA
     Dosage: 1C IN 10CC PHYSIOLOGICAL SOLUTION
     Route: 042
     Dates: start: 20210624, end: 20210625
  16. N?ACETYLCYSTEINE [Concomitant]
     Active Substance: ACETYLCYSTEINE
     Indication: ADVERSE EVENT
     Dosage: 600 MILLIGRAM, Q12H
     Route: 042
     Dates: start: 20210710, end: 20210714
  17. LACTULOSE. [Concomitant]
     Active Substance: LACTULOSE
     Indication: CONSTIPATION
     Dosage: 10 MILLILITER, Q8H PER NASOGASTRIC TUBE
     Route: 065
     Dates: start: 20210713, end: 20210714
  18. REMDESIVIR. [Suspect]
     Active Substance: REMDESIVIR
     Indication: COVID-19
     Dosage: 200 MILLIGRAM ONCE LOADING DOSE
     Route: 042
     Dates: start: 20210625, end: 20210625
  19. RANITIDINE. [Concomitant]
     Active Substance: RANITIDINE
     Indication: GASTROINTESTINAL HAEMORRHAGE
     Dosage: 100 MILLIGRAM, Q8H
     Route: 042
     Dates: start: 20210624, end: 20210714
  20. LORAZEPAM. [Concomitant]
     Active Substance: LORAZEPAM
     Indication: SEDATION
     Dosage: 1AMPOULE
     Route: 065
     Dates: start: 20210629, end: 20210629

REACTIONS (1)
  - Septic shock [Fatal]

NARRATIVE: CASE EVENT DATE: 20210714
